FAERS Safety Report 10481249 (Version 1)
Quarter: 2014Q3

REPORT INFORMATION
  Report Type: Spontaneous
  Country: US (occurrence: None)
  Receive Date: 20140908
  Receipt Date: 20140908
  Transmission Date: 20150326
  Serious: Yes (Other)
  Sender: FDA-Public Use
  Company Number: 392119

PATIENT
  Age: 66 Year
  Sex: Female
  Weight: 72.6 kg

DRUGS (6)
  1. VICTOZA [Suspect]
     Active Substance: LIRAGLUTIDE
     Indication: TYPE 2 DIABETES MELLITUS
     Route: 058
     Dates: start: 20130605, end: 20130705
  2. METFORMIN [Concomitant]
     Active Substance: METFORMIN HYDROCHLORIDE
  3. TRICOR [Concomitant]
     Active Substance: FENOFIBRATE
  4. LOSARTAN (LOSARTAN) [Concomitant]
     Active Substance: LOSARTAN
  5. AMLODIPINE [Concomitant]
     Active Substance: AMLODIPINE BESYLATE
  6. NOVOLOG FLEX PEN (INSULIN ASPART) [Concomitant]

REACTIONS (4)
  - Cholelithiasis [None]
  - Weight decreased [None]
  - Pancreatitis [None]
  - Dizziness [None]

NARRATIVE: CASE EVENT DATE: 201306
